FAERS Safety Report 14098051 (Version 1)
Quarter: 2017Q4

REPORT INFORMATION
  Report Type: Spontaneous
  Country: RU (occurrence: RU)
  Receive Date: 20171017
  Receipt Date: 20171017
  Transmission Date: 20180321
  Serious: Yes (Hospitalization)
  Sender: FDA-Public Use
  Company Number: RU-ASTRAZENECA-2017SF05196

PATIENT
  Age: 59 Year
  Sex: Male
  Weight: 114 kg

DRUGS (3)
  1. PRESTARIUM [Concomitant]
     Active Substance: PERINDOPRIL
  2. PREDNISOLONE. [Concomitant]
     Active Substance: PREDNISOLONE
  3. BRILINTA [Suspect]
     Active Substance: TICAGRELOR
     Indication: MYOCARDIAL INFARCTION
     Route: 048
     Dates: start: 20170410

REACTIONS (1)
  - Cataract [Recovered/Resolved]

NARRATIVE: CASE EVENT DATE: 201707
